FAERS Safety Report 19021854 (Version 2)
Quarter: 2022Q4

REPORT INFORMATION
  Report Type: Spontaneous
  Country: DE (occurrence: DE)
  Receive Date: 20210318
  Receipt Date: 20221101
  Transmission Date: 20230113
  Serious: Yes (Hospitalization)
  Sender: FDA-Public Use
  Company Number: DE-ADRED-06236-01

PATIENT
  Age: 83 Year
  Sex: Female

DRUGS (14)
  1. ASPIRIN [Suspect]
     Active Substance: ASPIRIN
     Dosage: 100 MG,  0-1-0-0
  2. CLOPIDOGREL BISULFATE [Suspect]
     Active Substance: CLOPIDOGREL BISULFATE
     Dosage: 75 MG, 1-0-0-0
  3. CANDESARTAN [Suspect]
     Active Substance: CANDESARTAN
     Dosage: 16 MG, 1-0-0-0
     Route: 065
  4. TORSEMIDE [Suspect]
     Active Substance: TORSEMIDE
     Dosage: 10 MG, 0.5-1-0-0
  5. PANTOPRAZOLE [Concomitant]
     Active Substance: PANTOPRAZOLE
     Dosage: 40 MG, 1-0-0-0
  6. LEVOTHYROXINUM NATRICUM [Concomitant]
     Dosage: 100 UG, 1.5-0-0-0
  7. LEVOTHYROXINUM NATRICUM [Concomitant]
     Dosage: 100?G, 1.5-0-0-0
  8. FOSTERA [Concomitant]
     Dosage: 6 | 100 G, 2-0-2-0, METERED DOSE INHALER
     Route: 055
  9. METOPROLOL [Concomitant]
     Active Substance: METOPROLOL
     Dosage: 23.75 MG, 1-0-1-0
     Route: 065
  10. URAPIDIL [Concomitant]
     Active Substance: URAPIDIL
     Dosage: 30 MG, 1-0-1-0
  11. AMLODIPINE BESYLATE [Concomitant]
     Active Substance: AMLODIPINE BESYLATE
     Dosage: 10 MG, 0.5-0-0.5-0
  12. PREDNISOLONE [Concomitant]
     Active Substance: PREDNISOLONE
     Dosage: 5 MG, 1-0-0-0
  13. QUETIAPINE [Concomitant]
     Active Substance: QUETIAPINE
     Dosage: 25 MG,  0-0-0-1
  14. PANTOPRAZOLE SODIUM [Concomitant]
     Active Substance: PANTOPRAZOLE SODIUM
     Dosage: 40 MG, 1-0-0-0
     Route: 065

REACTIONS (4)
  - Fall [Recovering/Resolving]
  - Hyponatraemia [Unknown]
  - Dizziness [Unknown]
  - Iron deficiency anaemia [Unknown]
